FAERS Safety Report 20901645 (Version 2)
Quarter: 2022Q2

REPORT INFORMATION
  Report Type: Spontaneous
  Country: RU (occurrence: None)
  Receive Date: 20220601
  Receipt Date: 20220617
  Transmission Date: 20220721
  Serious: Yes (Other)
  Sender: FDA-Public Use
  Company Number: RU-ROCHE-3103823

PATIENT

DRUGS (2)
  1. ATEZOLIZUMAB [Suspect]
     Active Substance: ATEZOLIZUMAB
     Indication: Non-small cell lung cancer
     Route: 041
     Dates: start: 20210324, end: 20210526
  2. BEVACIZUMAB [Suspect]
     Active Substance: BEVACIZUMAB
     Indication: Non-small cell lung cancer
     Route: 041

REACTIONS (14)
  - Intracranial mass [Unknown]
  - Paranasal cyst [Unknown]
  - Hepatic mass [Unknown]
  - Pulmonary fibrosis [Unknown]
  - Mesenteric artery thrombosis [Unknown]
  - Hepatomegaly [Unknown]
  - Renal cyst [Unknown]
  - Aortic arteriosclerosis [Unknown]
  - Blood pressure increased [Unknown]
  - Epistaxis [Unknown]
  - Asthenia [Unknown]
  - Fatigue [Unknown]
  - Dry skin [Unknown]
  - Skin exfoliation [Unknown]
